FAERS Safety Report 24682487 (Version 4)
Quarter: 2025Q1

REPORT INFORMATION
  Report Type: Spontaneous
  Country: JP (occurrence: JP)
  Receive Date: 20241130
  Receipt Date: 20250113
  Transmission Date: 20250409
  Serious: Yes (Death, Other)
  Sender: ALEXION PHARMACEUTICALS
  Company Number: JP-ASTRAZENECA-240129495_012620_P_1

PATIENT
  Age: 66 Year
  Weight: 37 kg

DRUGS (148)
  1. TRUQAP [Suspect]
     Active Substance: CAPIVASERTIB
     Indication: Breast cancer female
     Dosage: 400 MILLIGRAM, BID
  2. TRUQAP [Suspect]
     Active Substance: CAPIVASERTIB
     Dosage: 400 MILLIGRAM, BID
     Route: 048
  3. TRUQAP [Suspect]
     Active Substance: CAPIVASERTIB
     Dosage: 400 MILLIGRAM, BID
     Route: 048
  4. TRUQAP [Suspect]
     Active Substance: CAPIVASERTIB
     Dosage: 400 MILLIGRAM, BID
  5. TRUQAP [Suspect]
     Active Substance: CAPIVASERTIB
  6. TRUQAP [Suspect]
     Active Substance: CAPIVASERTIB
     Route: 048
  7. TRUQAP [Suspect]
     Active Substance: CAPIVASERTIB
  8. TRUQAP [Suspect]
     Active Substance: CAPIVASERTIB
     Route: 048
  9. TRUQAP [Suspect]
     Active Substance: CAPIVASERTIB
  10. TRUQAP [Suspect]
     Active Substance: CAPIVASERTIB
     Route: 048
  11. TRUQAP [Suspect]
     Active Substance: CAPIVASERTIB
  12. TRUQAP [Suspect]
     Active Substance: CAPIVASERTIB
     Route: 048
  13. TRUQAP [Suspect]
     Active Substance: CAPIVASERTIB
     Dosage: ON A 4-DAYS-ON, 3-DAYS-OFF SCHEDULE
     Route: 048
  14. TRUQAP [Suspect]
     Active Substance: CAPIVASERTIB
     Dosage: ON A 4-DAYS-ON, 3-DAYS-OFF SCHEDULE
  15. TRUQAP [Suspect]
     Active Substance: CAPIVASERTIB
     Dosage: ON A 4-DAYS-ON, 3-DAYS-OFF SCHEDULE
     Route: 048
  16. TRUQAP [Suspect]
     Active Substance: CAPIVASERTIB
     Dosage: ON A 4-DAYS-ON, 3-DAYS-OFF SCHEDULE
  17. TRUQAP [Suspect]
     Active Substance: CAPIVASERTIB
     Dosage: 400 MILLIGRAM, BID
     Route: 048
  18. TRUQAP [Suspect]
     Active Substance: CAPIVASERTIB
     Dosage: 400 MILLIGRAM, BID
  19. TRUQAP [Suspect]
     Active Substance: CAPIVASERTIB
     Dosage: 400 MILLIGRAM, BID
  20. TRUQAP [Suspect]
     Active Substance: CAPIVASERTIB
     Dosage: 400 MILLIGRAM, BID
     Route: 048
  21. FULVESTRANT [Suspect]
     Active Substance: FULVESTRANT
     Indication: Breast cancer
  22. FULVESTRANT [Suspect]
     Active Substance: FULVESTRANT
     Indication: Breast cancer female
     Route: 030
  23. FULVESTRANT [Suspect]
     Active Substance: FULVESTRANT
     Route: 030
  24. FULVESTRANT [Suspect]
     Active Substance: FULVESTRANT
  25. FULVESTRANT [Suspect]
     Active Substance: FULVESTRANT
     Route: 030
  26. FULVESTRANT [Suspect]
     Active Substance: FULVESTRANT
  27. FULVESTRANT [Suspect]
     Active Substance: FULVESTRANT
     Route: 030
  28. FULVESTRANT [Suspect]
     Active Substance: FULVESTRANT
  29. FULVESTRANT [Suspect]
     Active Substance: FULVESTRANT
  30. FULVESTRANT [Suspect]
     Active Substance: FULVESTRANT
     Route: 030
  31. FULVESTRANT [Suspect]
     Active Substance: FULVESTRANT
     Route: 030
  32. FULVESTRANT [Suspect]
     Active Substance: FULVESTRANT
  33. FULVESTRANT [Suspect]
     Active Substance: FULVESTRANT
  34. FULVESTRANT [Suspect]
     Active Substance: FULVESTRANT
     Route: 030
  35. FULVESTRANT [Suspect]
     Active Substance: FULVESTRANT
  36. FULVESTRANT [Suspect]
     Active Substance: FULVESTRANT
     Route: 030
  37. FULVESTRANT [Suspect]
     Active Substance: FULVESTRANT
     Route: 030
  38. FULVESTRANT [Suspect]
     Active Substance: FULVESTRANT
  39. FULVESTRANT [Suspect]
     Active Substance: FULVESTRANT
     Route: 030
  40. FULVESTRANT [Suspect]
     Active Substance: FULVESTRANT
  41. FULVESTRANT [Suspect]
     Active Substance: FULVESTRANT
     Route: 030
  42. FULVESTRANT [Suspect]
     Active Substance: FULVESTRANT
  43. FULVESTRANT [Suspect]
     Active Substance: FULVESTRANT
  44. FULVESTRANT [Suspect]
     Active Substance: FULVESTRANT
     Route: 030
  45. FULVESTRANT [Suspect]
     Active Substance: FULVESTRANT
     Route: 030
  46. FULVESTRANT [Suspect]
     Active Substance: FULVESTRANT
  47. FULVESTRANT [Suspect]
     Active Substance: FULVESTRANT
     Route: 030
  48. FULVESTRANT [Suspect]
     Active Substance: FULVESTRANT
  49. FULVESTRANT [Suspect]
     Active Substance: FULVESTRANT
     Route: 030
  50. FULVESTRANT [Suspect]
     Active Substance: FULVESTRANT
  51. FULVESTRANT [Suspect]
     Active Substance: FULVESTRANT
  52. FULVESTRANT [Suspect]
     Active Substance: FULVESTRANT
     Route: 030
  53. FULVESTRANT [Suspect]
     Active Substance: FULVESTRANT
  54. FULVESTRANT [Suspect]
     Active Substance: FULVESTRANT
     Route: 030
  55. FULVESTRANT [Suspect]
     Active Substance: FULVESTRANT
  56. FULVESTRANT [Suspect]
     Active Substance: FULVESTRANT
     Route: 030
  57. FULVESTRANT [Suspect]
     Active Substance: FULVESTRANT
  58. FULVESTRANT [Suspect]
     Active Substance: FULVESTRANT
     Route: 030
  59. FULVESTRANT [Suspect]
     Active Substance: FULVESTRANT
     Route: 030
  60. FULVESTRANT [Suspect]
     Active Substance: FULVESTRANT
  61. ANASTROZOLE [Suspect]
     Active Substance: ANASTROZOLE
     Indication: Breast cancer
     Dosage: 1 MILLIGRAM, QD
  62. ANASTROZOLE [Suspect]
     Active Substance: ANASTROZOLE
     Dosage: 1 MILLIGRAM, QD
     Route: 048
  63. ANASTROZOLE [Suspect]
     Active Substance: ANASTROZOLE
     Dosage: 1 MILLIGRAM, QD
  64. ANASTROZOLE [Suspect]
     Active Substance: ANASTROZOLE
     Dosage: 1 MILLIGRAM, QD
     Route: 048
  65. ANASTROZOLE [Suspect]
     Active Substance: ANASTROZOLE
     Dosage: 1 MILLIGRAM, QD
     Route: 048
  66. ANASTROZOLE [Suspect]
     Active Substance: ANASTROZOLE
     Dosage: 1 MILLIGRAM, QD
  67. ANASTROZOLE [Suspect]
     Active Substance: ANASTROZOLE
     Dosage: 1 MILLIGRAM, QD
     Route: 048
  68. ANASTROZOLE [Suspect]
     Active Substance: ANASTROZOLE
     Dosage: 1 MILLIGRAM, QD
  69. ANASTROZOLE [Suspect]
     Active Substance: ANASTROZOLE
     Route: 048
  70. ANASTROZOLE [Suspect]
     Active Substance: ANASTROZOLE
  71. ANASTROZOLE [Suspect]
     Active Substance: ANASTROZOLE
     Route: 048
  72. ANASTROZOLE [Suspect]
     Active Substance: ANASTROZOLE
  73. LYNPARZA [Suspect]
     Active Substance: OLAPARIB
     Indication: Breast cancer
     Route: 048
  74. LYNPARZA [Suspect]
     Active Substance: OLAPARIB
  75. LYNPARZA [Suspect]
     Active Substance: OLAPARIB
  76. LYNPARZA [Suspect]
     Active Substance: OLAPARIB
     Route: 048
  77. LYNPARZA [Suspect]
     Active Substance: OLAPARIB
     Route: 048
  78. LYNPARZA [Suspect]
     Active Substance: OLAPARIB
  79. LYNPARZA [Suspect]
     Active Substance: OLAPARIB
     Route: 048
  80. LYNPARZA [Suspect]
     Active Substance: OLAPARIB
  81. LYNPARZA [Suspect]
     Active Substance: OLAPARIB
     Route: 048
  82. LYNPARZA [Suspect]
     Active Substance: OLAPARIB
  83. LYNPARZA [Suspect]
     Active Substance: OLAPARIB
     Route: 048
  84. LYNPARZA [Suspect]
     Active Substance: OLAPARIB
  85. LYNPARZA [Suspect]
     Active Substance: OLAPARIB
     Route: 048
  86. LYNPARZA [Suspect]
     Active Substance: OLAPARIB
  87. LYNPARZA [Suspect]
     Active Substance: OLAPARIB
  88. LYNPARZA [Suspect]
     Active Substance: OLAPARIB
     Route: 048
  89. LYNPARZA [Suspect]
     Active Substance: OLAPARIB
  90. LYNPARZA [Suspect]
     Active Substance: OLAPARIB
     Route: 048
  91. LYNPARZA [Suspect]
     Active Substance: OLAPARIB
     Route: 048
  92. LYNPARZA [Suspect]
     Active Substance: OLAPARIB
  93. LYNPARZA [Suspect]
     Active Substance: OLAPARIB
  94. LYNPARZA [Suspect]
     Active Substance: OLAPARIB
     Route: 048
  95. LYNPARZA [Suspect]
     Active Substance: OLAPARIB
  96. LYNPARZA [Suspect]
     Active Substance: OLAPARIB
     Route: 048
  97. VONOPRAZAN FUMARATE [Concomitant]
     Active Substance: VONOPRAZAN FUMARATE
     Route: 065
  98. VONOPRAZAN FUMARATE [Concomitant]
     Active Substance: VONOPRAZAN FUMARATE
     Route: 065
  99. OXYCONTIN [Concomitant]
     Active Substance: OXYCODONE HYDROCHLORIDE
     Route: 065
  100. OXYCONTIN [Concomitant]
     Active Substance: OXYCODONE HYDROCHLORIDE
     Route: 065
  101. OXYCONTIN [Concomitant]
     Active Substance: OXYCODONE HYDROCHLORIDE
     Route: 065
  102. OXYCONTIN [Concomitant]
     Active Substance: OXYCODONE HYDROCHLORIDE
     Route: 065
  103. ZOMETA [Concomitant]
     Active Substance: ZOLEDRONIC ACID
     Indication: Breast cancer
     Route: 065
  104. ZOMETA [Concomitant]
     Active Substance: ZOLEDRONIC ACID
     Route: 065
  105. ZOMETA [Concomitant]
     Active Substance: ZOLEDRONIC ACID
     Route: 065
  106. ZOMETA [Concomitant]
     Active Substance: ZOLEDRONIC ACID
     Route: 065
  107. ZOMETA [Concomitant]
     Active Substance: ZOLEDRONIC ACID
     Route: 065
  108. ZOMETA [Concomitant]
     Active Substance: ZOLEDRONIC ACID
     Route: 065
  109. ZOMETA [Concomitant]
     Active Substance: ZOLEDRONIC ACID
     Route: 065
  110. ZOMETA [Concomitant]
     Active Substance: ZOLEDRONIC ACID
     Route: 065
  111. ZOMETA [Concomitant]
     Active Substance: ZOLEDRONIC ACID
     Route: 065
  112. ZOMETA [Concomitant]
     Active Substance: ZOLEDRONIC ACID
     Route: 065
  113. ZOMETA [Concomitant]
     Active Substance: ZOLEDRONIC ACID
     Route: 065
  114. ZOMETA [Concomitant]
     Active Substance: ZOLEDRONIC ACID
     Route: 065
  115. ZOMETA [Concomitant]
     Active Substance: ZOLEDRONIC ACID
     Route: 065
  116. ZOMETA [Concomitant]
     Active Substance: ZOLEDRONIC ACID
     Route: 065
  117. ZOMETA [Concomitant]
     Active Substance: ZOLEDRONIC ACID
     Route: 065
  118. ZOMETA [Concomitant]
     Active Substance: ZOLEDRONIC ACID
     Route: 065
  119. ZOMETA [Concomitant]
     Active Substance: ZOLEDRONIC ACID
     Route: 065
  120. ZOMETA [Concomitant]
     Active Substance: ZOLEDRONIC ACID
     Route: 065
  121. ZOMETA [Concomitant]
     Active Substance: ZOLEDRONIC ACID
     Route: 065
  122. ZOMETA [Concomitant]
     Active Substance: ZOLEDRONIC ACID
     Route: 065
  123. IBRANCE [Concomitant]
     Active Substance: PALBOCICLIB
     Indication: Breast cancer
  124. IBRANCE [Concomitant]
     Active Substance: PALBOCICLIB
     Route: 048
  125. IBRANCE [Concomitant]
     Active Substance: PALBOCICLIB
  126. IBRANCE [Concomitant]
     Active Substance: PALBOCICLIB
     Route: 048
  127. ADRIACIN [Concomitant]
     Active Substance: DOXORUBICIN HYDROCHLORIDE
     Indication: Breast cancer
     Route: 065
  128. ADRIACIN [Concomitant]
     Active Substance: DOXORUBICIN HYDROCHLORIDE
     Route: 065
  129. ADRIACIN [Concomitant]
     Active Substance: DOXORUBICIN HYDROCHLORIDE
     Route: 065
  130. ADRIACIN [Concomitant]
     Active Substance: DOXORUBICIN HYDROCHLORIDE
     Route: 065
  131. CYCLOPHOSPHAMIDE [Concomitant]
     Active Substance: CYCLOPHOSPHAMIDE
     Indication: Breast cancer
     Route: 065
  132. CYCLOPHOSPHAMIDE [Concomitant]
     Active Substance: CYCLOPHOSPHAMIDE
     Route: 065
  133. CYCLOPHOSPHAMIDE [Concomitant]
     Active Substance: CYCLOPHOSPHAMIDE
     Route: 065
  134. CYCLOPHOSPHAMIDE [Concomitant]
     Active Substance: CYCLOPHOSPHAMIDE
     Route: 065
  135. CYCLOPHOSPHAMIDE [Concomitant]
     Active Substance: CYCLOPHOSPHAMIDE
  136. CYCLOPHOSPHAMIDE [Concomitant]
     Active Substance: CYCLOPHOSPHAMIDE
     Route: 048
  137. TAXOL [Concomitant]
     Active Substance: PACLITAXEL
     Indication: Breast cancer
     Route: 065
  138. TAXOL [Concomitant]
     Active Substance: PACLITAXEL
     Route: 065
  139. TAXOL [Concomitant]
     Active Substance: PACLITAXEL
     Route: 065
  140. TAXOL [Concomitant]
     Active Substance: PACLITAXEL
     Route: 065
  141. ENHERTU [Concomitant]
     Active Substance: FAM-TRASTUZUMAB DERUXTECAN-NXKI
     Indication: Breast cancer
     Route: 065
  142. ENHERTU [Concomitant]
     Active Substance: FAM-TRASTUZUMAB DERUXTECAN-NXKI
     Route: 065
  143. XELODA [Concomitant]
     Active Substance: CAPECITABINE
     Indication: Breast cancer
     Route: 048
  144. XELODA [Concomitant]
     Active Substance: CAPECITABINE
  145. PACLITAXEL [Concomitant]
     Active Substance: PACLITAXEL
     Indication: Breast cancer
     Route: 065
  146. PACLITAXEL [Concomitant]
     Active Substance: PACLITAXEL
     Route: 065
  147. AVASTIN [Concomitant]
     Active Substance: BEVACIZUMAB
     Indication: Breast cancer
     Route: 065
  148. AVASTIN [Concomitant]
     Active Substance: BEVACIZUMAB
     Route: 065

REACTIONS (22)
  - Diabetic ketoacidosis [Fatal]
  - Circulatory collapse [Fatal]
  - Respiratory failure [Fatal]
  - Renal failure [Fatal]
  - Dehydration [Fatal]
  - Thoracic vertebral fracture [Unknown]
  - Pulmonary embolism [Unknown]
  - Monoplegia [Unknown]
  - Radiation pneumonitis [Unknown]
  - Pulmonary toxicity [Unknown]
  - Cystitis haemorrhagic [Unknown]
  - Tumour marker increased [Unknown]
  - Vomiting [Recovered/Resolved]
  - Diarrhoea [Unknown]
  - Insulin resistance [Unknown]
  - Nausea [Unknown]
  - Malaise [Unknown]
  - Decreased appetite [Unknown]
  - Neutrophil count decreased [Unknown]
  - Nausea [Unknown]
  - Malaise [Unknown]
  - Dysuria [Unknown]
